FAERS Safety Report 12167253 (Version 2)
Quarter: 2016Q1

REPORT INFORMATION
  Report Type: Spontaneous
  Country: US (occurrence: US)
  Receive Date: 20160310
  Receipt Date: 20160311
  Transmission Date: 20160526
  Serious: No
  Sender: FDA-Public Use
  Company Number: US-BAYER-2016-046845

PATIENT
  Age: 14 Year
  Sex: Male

DRUGS (1)
  1. MIRALAX [Suspect]
     Active Substance: POLYETHYLENE GLYCOL 3350
     Indication: CONSTIPATION
     Dosage: STARTED TAKING IT DAILY BUT THEN THEY CHANGED IT TO A FEW TIMES PER WEEK, ONE DOSE
     Dates: start: 201601, end: 201602

REACTIONS (5)
  - Tic [Recovered/Resolved]
  - Therapeutic response unexpected [Recovered/Resolved]
  - Aggression [Recovered/Resolved]
  - Off label use [None]
  - Obsessive-compulsive disorder [Recovered/Resolved]

NARRATIVE: CASE EVENT DATE: 201601
